FAERS Safety Report 18552288 (Version 5)
Quarter: 2021Q2

REPORT INFORMATION
  Report Type: Report from Study
  Country: US (occurrence: US)
  Receive Date: 20201127
  Receipt Date: 20210522
  Transmission Date: 20210717
  Serious: Yes (Other)
  Sender: FDA-Public Use
  Company Number: NVSC2020US306783

PATIENT
  Sex: Male

DRUGS (1)
  1. ENTRESTO [Suspect]
     Active Substance: SACUBITRIL\VALSARTAN
     Indication: CARDIAC FAILURE
     Dosage: 1 DF (24/26 MG), BID
     Route: 048
     Dates: start: 202010

REACTIONS (13)
  - Dyspnoea [Recovering/Resolving]
  - Haemoglobin decreased [Unknown]
  - Nasopharyngitis [Unknown]
  - Rhinorrhoea [Recovering/Resolving]
  - Cough [Recovering/Resolving]
  - Hypertension [Unknown]
  - Fall [Unknown]
  - Pain in extremity [Unknown]
  - Chest discomfort [Unknown]
  - Secretion discharge [Unknown]
  - Back pain [Unknown]
  - Groin pain [Unknown]
  - SARS-CoV-2 test positive [Recovering/Resolving]
